FAERS Safety Report 24026468 (Version 2)
Quarter: 2024Q3

REPORT INFORMATION
  Report Type: Spontaneous
  Country: DE (occurrence: DE)
  Receive Date: 20240628
  Receipt Date: 20240710
  Transmission Date: 20241016
  Serious: No
  Sender: ROCHE
  Company Number: DE-ROCHE-3495380

PATIENT
  Sex: Female

DRUGS (1)
  1. PHESGO [Suspect]
     Active Substance: HYALURONIDASE-ZZXF\PERTUZUMAB\TRASTUZUMAB
     Indication: HER2 positive breast cancer
     Route: 058

REACTIONS (7)
  - Injection site reaction [Unknown]
  - Injection site rash [Unknown]
  - Dyspnoea [Unknown]
  - Nausea [Unknown]
  - Pyrexia [Unknown]
  - Syncope [Unknown]
  - Hypersensitivity [Unknown]
